FAERS Safety Report 7996266-1 (Version None)
Quarter: 2011Q4

REPORT INFORMATION
  Report Type: 
  Country: None (occurrence: None)
  Receive Date: 20111220
  Receipt Date: 20111213
  Transmission Date: 20120403
  Serious: Yes (Other)
  Sender: FDA-Public Use
  Company Number: AU-PFIZER INC-2011302627

PATIENT

DRUGS (1)
  1. RAPAMUNE [Suspect]
     Indication: AUTOIMMUNE DISORDER

REACTIONS (1)
  - HEPATIC NECROSIS [None]
